FAERS Safety Report 4395858-9 (Version None)
Quarter: 2004Q3

REPORT INFORMATION
  Report Type: 
  Country: None (occurrence: None)
  Receive Date: 20040709
  Receipt Date: 20040625
  Transmission Date: 20050211
  Serious: Yes (Other)
  Sender: FDA-Public Use
  Company Number: US-JNJFOC-20040607912

PATIENT
  Age: 66 Year
  Sex: Female
  Weight: 57.1532 kg

DRUGS (10)
  1. REMICADE [Suspect]
     Indication: RHEUMATOID ARTHRITIS
     Dosage: INTRAVENOUS
     Route: 042
     Dates: start: 20020507
  2. CELEBREX [Concomitant]
  3. METHOTREXATE [Concomitant]
  4. PLAQUENIL [Concomitant]
  5. PREDNISONE TAB [Concomitant]
  6. ADALAT [Concomitant]
  7. FOLIC ACID [Concomitant]
  8. ELAVIL [Concomitant]
  9. PREMPRO 14/14 [Concomitant]
  10. CALCIUM (CALCIUM) [Concomitant]

REACTIONS (1)
  - BASAL CELL CARCINOMA [None]
